FAERS Safety Report 7352911-5 (Version None)
Quarter: 2011Q1

REPORT INFORMATION
  Report Type: 
  Country: None (occurrence: None)
  Receive Date: 20110315
  Receipt Date: 20110310
  Transmission Date: 20110831
  Serious: No
  Sender: FDA-Public Use
  Company Number: US-TEVA-271188USA

PATIENT
  Sex: Female
  Weight: 72.64 kg

DRUGS (1)
  1. PLAN B ONE-STEP [Suspect]
     Indication: POST COITAL CONTRACEPTION
     Route: 048

REACTIONS (3)
  - FATIGUE [None]
  - MENSTRUATION DELAYED [None]
  - DECREASED APPETITE [None]
